FAERS Safety Report 16936874 (Version 2)
Quarter: 2019Q4

REPORT INFORMATION
  Report Type: Spontaneous
  Country: GB (occurrence: GB)
  Receive Date: 20191018
  Receipt Date: 20191022
  Transmission Date: 20200122
  Serious: Yes (Death)
  Sender: FDA-Public Use
  Company Number: GB-MYLANLABS-2019M1098277

PATIENT
  Age: 51 Year
  Sex: Male

DRUGS (8)
  1. CICLOSPORIN [Suspect]
     Active Substance: CYCLOSPORINE
     Dosage: 8 MILLIGRAM, QD (4?8 MG/KG/D IN TWO DIVIDED DOSES)
     Route: 065
  2. MYCOPHENOLATE MOFETIL. [Suspect]
     Active Substance: MYCOPHENOLATE MOFETIL
     Indication: IMMUNOSUPPRESSION
     Dosage: 2000 MILLIGRAM, QD (750 - 1000 MG TWICE A DAY)
     Route: 048
  3. MYCOPHENOLATE MOFETIL. [Suspect]
     Active Substance: MYCOPHENOLATE MOFETIL
     Dosage: 1000 MILLIGRAM, QD (750?1000 MG B.I.D)
     Route: 048
  4. VALGANCICLOVIR. [Suspect]
     Active Substance: VALGANCICLOVIR
     Indication: CYTOMEGALOVIRUS INFECTION
     Dosage: 900 MILLIGRAM, QD (450 - 900 MG/DAY)
     Route: 065
  5. CICLOSPORIN [Suspect]
     Active Substance: CYCLOSPORINE
     Indication: IMMUNOSUPPRESSION
     Dosage: 16 MILLIGRAM/KILOGRAM, QD (4 - 8 MG/KG/DAY TWO DIVIDED DOSES)
     Route: 065
  6. CYTOTECT [Suspect]
     Active Substance: HUMAN CYTOMEGALOVIRUS IMMUNE GLOBULIN
     Indication: CYTOMEGALOVIRUS INFECTION
     Dosage: 1 DOSAGE FORM, QW (2 - 3 ML/KG)
     Route: 065
  7. GANCICLOVIR SODIUM. [Suspect]
     Active Substance: GANCICLOVIR SODIUM
     Indication: CYTOMEGALOVIRUS INFECTION
     Dosage: 10 MILLIGRAM/KILOGRAM, QD
     Route: 042
  8. GANCICLOVIR SODIUM. [Suspect]
     Active Substance: GANCICLOVIR SODIUM
     Dosage: INTRAVENOUS GCV (5 MG/KG B.I.D)
     Route: 042

REACTIONS (3)
  - Myocarditis toxoplasmal [Fatal]
  - Renal failure [Fatal]
  - Cytomegalovirus syndrome [Fatal]
